FAERS Safety Report 16127621 (Version 1)
Quarter: 2019Q1

REPORT INFORMATION
  Report Type: Spontaneous
  Country: US (occurrence: US)
  Receive Date: 20190328
  Receipt Date: 20190328
  Transmission Date: 20190418
  Serious: No
  Sender: FDA-Public Use
  Company Number: US-PFIZER INC-2019126308

PATIENT
  Age: 72 Year
  Sex: Female
  Weight: 90.72 kg

DRUGS (1)
  1. NEURONTIN [Suspect]
     Active Substance: GABAPENTIN
     Dosage: 50 MG, 2X/DAY
     Route: 048

REACTIONS (2)
  - Product use issue [Unknown]
  - Drug ineffective [Unknown]
